FAERS Safety Report 20723561 (Version 5)
Quarter: 2022Q3

REPORT INFORMATION
  Report Type: Spontaneous
  Country: US (occurrence: US)
  Receive Date: 20220419
  Receipt Date: 20220927
  Transmission Date: 20221027
  Serious: Yes (Hospitalization, Other)
  Sender: FDA-Public Use
  Company Number: US-BIOVITRUM-2022US05037

PATIENT
  Age: 61 Year
  Sex: Female

DRUGS (3)
  1. KINERET [Suspect]
     Active Substance: ANAKINRA
     Indication: Still^s disease
     Dates: start: 201904
  2. KINERET [Suspect]
     Active Substance: ANAKINRA
     Dates: start: 20191112
  3. IBUPROFEN [Suspect]
     Active Substance: IBUPROFEN
     Indication: Product used for unknown indication

REACTIONS (9)
  - Pancreatitis acute [Unknown]
  - Angina pectoris [Unknown]
  - Bronchitis [Unknown]
  - Condition aggravated [Unknown]
  - Arthritis infective [Unknown]
  - Arthralgia [Unknown]
  - Product dose omission issue [Unknown]
  - Drug ineffective [Unknown]
  - Off label use [Unknown]

NARRATIVE: CASE EVENT DATE: 20190401
